FAERS Safety Report 8029610-X (Version None)
Quarter: 2012Q1

REPORT INFORMATION
  Report Type: 
  Country: None (occurrence: None)
  Receive Date: 20120109
  Receipt Date: 20120106
  Transmission Date: 20120608
  Serious: No
  Sender: FDA-Public Use
  Company Number: US-PFIZER INC-2012004913

PATIENT
  Sex: Female
  Weight: 60.317 kg

DRUGS (5)
  1. CHANTIX [Suspect]
     Indication: SMOKING CESSATION THERAPY
     Dosage: 0.5 MG, 2X/DAY
     Route: 048
     Dates: start: 20111216, end: 20111201
  2. COPAXONE [Concomitant]
     Dosage: 20 ML, UNK
  3. CHANTIX [Suspect]
     Dosage: 1 MG, 2X/DAY
     Route: 048
     Dates: start: 20111201, end: 20111223
  4. XANAX [Concomitant]
     Dosage: UNK
  5. VITAMIN D [Concomitant]
     Dosage: 15000 IU, UNK

REACTIONS (1)
  - NAUSEA [None]
